FAERS Safety Report 8735036 (Version 2)
Quarter: 2012Q4

REPORT INFORMATION
  Report Type: 
  Country: US (occurrence: US)
  Receive Date: 20120821
  Receipt Date: 20120830
  Transmission Date: 20130627
  Serious: Yes (Other)
  Sender: FDA-Public Use
  Company Number: CHPA2012US018049

PATIENT
  Sex: Male

DRUGS (3)
  1. EXCEDRIN EXTRA STRENGTH [Suspect]
     Indication: HEADACHE
     Dosage: UNK
     Route: 048
     Dates: start: 1985, end: 1995
  2. EXCEDRIN EXTRA STRENGTH [Suspect]
     Dosage: 1 DF, PRN
     Route: 048
     Dates: start: 199502, end: 2012
  3. EXCEDRIN EXTRA STRENGTH [Suspect]
     Dosage: .5 DF, PRN
     Route: 048
     Dates: start: 2012

REACTIONS (8)
  - Brain neoplasm [Recovered/Resolved]
  - Myocardial infarction [Recovered/Resolved]
  - Deafness unilateral [Not Recovered/Not Resolved]
  - Muscle disorder [Not Recovered/Not Resolved]
  - Balance disorder [Recovered/Resolved]
  - Underdose [Unknown]
  - Wrong technique in drug usage process [Unknown]
  - Brain neoplasm benign [None]
